FAERS Safety Report 21996632 (Version 1)
Quarter: 2023Q1

REPORT INFORMATION
  Report Type: Spontaneous
  Country: US (occurrence: US)
  Receive Date: 20230215
  Receipt Date: 20230215
  Transmission Date: 20230417
  Serious: No
  Sender: FDA-Public Use
  Company Number: US-ALLERGAN-2233425US

PATIENT
  Sex: Female

DRUGS (1)
  1. VILAZODONE HYDROCHLORIDE [Suspect]
     Active Substance: VILAZODONE HYDROCHLORIDE
     Indication: Product used for unknown indication
     Dosage: 20 MG

REACTIONS (4)
  - Feeling abnormal [Unknown]
  - Nightmare [Unknown]
  - Sedation [Unknown]
  - Headache [Recovered/Resolved]
